FAERS Safety Report 22610929 (Version 2)
Quarter: 2024Q3

REPORT INFORMATION
  Report Type: Spontaneous
  Country: US (occurrence: US)
  Receive Date: 20230616
  Receipt Date: 20240913
  Transmission Date: 20241017
  Serious: Yes (Other)
  Sender: RANBAXY
  Company Number: US-SUN PHARMACEUTICAL INDUSTRIES LTD-2023R1-389928

PATIENT
  Age: 72 Year
  Sex: Male

DRUGS (3)
  1. METHOTREXATE [Suspect]
     Active Substance: METHOTREXATE
     Indication: Diffuse large B-cell lymphoma
     Dosage: 2 GRAM PER SQUARE METRE
     Route: 065
  2. LEUCOVORIN SODIUM [Concomitant]
     Active Substance: LEUCOVORIN SODIUM
     Indication: Diffuse large B-cell lymphoma
     Dosage: UNK
     Route: 065
  3. SODIUM BICARBONATE [Concomitant]
     Active Substance: SODIUM BICARBONATE
     Indication: Diffuse large B-cell lymphoma
     Dosage: UNK
     Route: 042

REACTIONS (1)
  - Toxicity to various agents [Unknown]
